FAERS Safety Report 5533183-0 (Version None)
Quarter: 2007Q4

REPORT INFORMATION
  Report Type: 
  Country: None (occurrence: None)
  Receive Date: 20071204
  Receipt Date: 20071127
  Transmission Date: 20080405
  Serious: Yes (Other)
  Sender: FDA-Public Use
  Company Number: BR-ROCHE-534082

PATIENT
  Age: 61 Year
  Sex: Female
  Weight: 75 kg

DRUGS (4)
  1. BONIVA [Suspect]
     Indication: OSTEOPOROSIS
     Route: 048
     Dates: start: 20070601
  2. OLCADIL [Concomitant]
     Dosage: DOSAGE REGIMEN: DAILY
     Dates: start: 20050101
  3. OSCAL D [Concomitant]
     Indication: OSTEOPOROSIS
     Dosage: DOSAGE REGIMEN: DAILY
     Dates: start: 20070601
  4. RANITIDINE HCL [Concomitant]
     Indication: URINARY TRACT DISORDER
     Dosage: DOSAGE REGIMEN: OCCASIONALLY

REACTIONS (6)
  - BACK PAIN [None]
  - GASTROINTESTINAL MUCOSAL DISORDER [None]
  - INSOMNIA [None]
  - LUNG NEOPLASM [None]
  - SKIN PAPILLOMA [None]
  - WEIGHT INCREASED [None]
